FAERS Safety Report 6709057-6 (Version None)
Quarter: 2010Q2

REPORT INFORMATION
  Report Type: 
  Country: None (occurrence: None)
  Receive Date: 20100430
  Receipt Date: 20100430
  Transmission Date: 20101027
  Serious: Yes (Life-Threatening, Hospitalization)
  Sender: FDA-Public Use
  Company Number: None

PATIENT
  Age: 28 Year
  Sex: Female
  Weight: 64 kg

DRUGS (2)
  1. USNIC ACID [Suspect]
     Dosage: ORAL 047
     Route: 048
  2. PEPTALINE [Suspect]
     Indication: WEIGHT CONTROL
     Dosage: ORAL 047
     Route: 048

REACTIONS (7)
  - ARTHRALGIA [None]
  - COAGULOPATHY [None]
  - JAUNDICE [None]
  - LIVER TRANSPLANT [None]
  - MALAISE [None]
  - MENTAL STATUS CHANGES [None]
  - NAUSEA [None]
